FAERS Safety Report 5889151-2 (Version None)
Quarter: 2008Q3

REPORT INFORMATION
  Report Type: 
  Country: None (occurrence: None)
  Receive Date: 20080917
  Receipt Date: 20080902
  Transmission Date: 20090109
  Serious: Yes (Hospitalization)
  Sender: FDA-Public Use
  Company Number: 2008002187

PATIENT
  Age: 79 Year
  Sex: Female
  Weight: 43.9 kg

DRUGS (7)
  1. ERLOTINIB (TABLET) [Suspect]
     Indication: LUNG ADENOCARCINOMA
     Dosage: (150 MG, QD) ,ORAL
     Route: 048
  2. ALFAROL (ALFACALCIDOL) [Concomitant]
  3. MAGNESIUM OXIDE (MAGNESIUM OXIDE) [Concomitant]
  4. GLUTAMINE [Concomitant]
  5. ETIZOLAM (ETIZOLAM) [Concomitant]
  6. ZOLPIDEM TARTRATE [Concomitant]
  7. DEXTROMETHORPHAN HYDROBROMIDE [Concomitant]

REACTIONS (4)
  - DIARRHOEA [None]
  - WHITE BLOOD CELL COUNT DECREASED [None]
  - XERODERMA [None]
  - XEROSIS [None]
